FAERS Safety Report 7913488-6 (Version None)
Quarter: 2011Q4

REPORT INFORMATION
  Report Type: 
  Country: None (occurrence: None)
  Receive Date: 20111110
  Receipt Date: 20111027
  Transmission Date: 20120403
  Serious: Yes (Death)
  Sender: FDA-Public Use
  Company Number: 2011AP002508

PATIENT
  Age: 65 Year
  Sex: Male

DRUGS (6)
  1. VALPROATE SODIUM [Suspect]
     Indication: EPILEPSY
     Dosage: 200 MG;QD
  2. METFORMIN HCL [Suspect]
     Indication: PRODUCT USED FOR UNKNOWN INDICATION
     Dosage: 850 MG;TID
  3. ATORVASTATIN CALCIUM [Concomitant]
  4. TEMAZEPAM [Concomitant]
  5. GLICLAZIDE (GLICLAZIDE) [Concomitant]
  6. OMEPRAZOLE [Suspect]
     Indication: PRODUCT USED FOR UNKNOWN INDICATION
     Dosage: 20 MG;QD

REACTIONS (5)
  - EXSANGUINATION [None]
  - LEG AMPUTATION [None]
  - THINKING ABNORMAL [None]
  - PSYCHOTIC DISORDER [None]
  - INTENTIONAL SELF-INJURY [None]
